FAERS Safety Report 13782216 (Version 2)
Quarter: 2017Q3

REPORT INFORMATION
  Report Type: Spontaneous
  Country: US (occurrence: US)
  Receive Date: 20170724
  Receipt Date: 20170731
  Transmission Date: 20171127
  Serious: Yes (Other)
  Sender: FDA-Public Use
  Company Number: US-BAYER-2017-139455

PATIENT
  Sex: Female

DRUGS (1)
  1. MIRENA [Suspect]
     Active Substance: LEVONORGESTREL
     Indication: CONTRACEPTION
     Dosage: 20 MCG/24HR, CONT
     Route: 015
     Dates: start: 20130408

REACTIONS (15)
  - Genital haemorrhage [Not Recovered/Not Resolved]
  - Dizziness [Not Recovered/Not Resolved]
  - Uterine pain [Not Recovered/Not Resolved]
  - Embedded device [Not Recovered/Not Resolved]
  - Device difficult to use [None]
  - Vomiting [Not Recovered/Not Resolved]
  - Bacterial infection [Not Recovered/Not Resolved]
  - Complication of device insertion [None]
  - Adverse drug reaction [None]
  - Abdominal distension [Not Recovered/Not Resolved]
  - Psychiatric symptom [Not Recovered/Not Resolved]
  - Pelvic inflammatory disease [Not Recovered/Not Resolved]
  - Device issue [None]
  - White blood cell count increased [Not Recovered/Not Resolved]
  - Procedural pain [Not Recovered/Not Resolved]
